FAERS Safety Report 14398780 (Version 2)
Quarter: 2018Q1

REPORT INFORMATION
  Report Type: Report from Study
  Country: None (occurrence: US)
  Receive Date: 20180117
  Receipt Date: 20180212
  Transmission Date: 20180509
  Serious: No
  Sender: FDA-Public Use
  Company Number: US-ABBVIE-18K-163-2224021-00

PATIENT
  Sex: Female

DRUGS (1)
  1. HUMIRA [Suspect]
     Active Substance: ADALIMUMAB
     Indication: COLITIS ULCERATIVE
     Route: 058
     Dates: start: 201705

REACTIONS (4)
  - Limb injury [Not Recovered/Not Resolved]
  - Pain in extremity [Recovering/Resolving]
  - Fall [Unknown]
  - Colitis ulcerative [Not Recovered/Not Resolved]
